FAERS Safety Report 6058007-7 (Version None)
Quarter: 2009Q1

REPORT INFORMATION
  Report Type: 
  Country: None (occurrence: None)
  Receive Date: 20090127
  Receipt Date: 20090116
  Transmission Date: 20090719
  Serious: Yes (Hospitalization)
  Sender: FDA-Public Use
  Company Number: MPS1-1000167

PATIENT
  Age: 16 Year
  Sex: Male
  Weight: 56.8 kg

DRUGS (1)
  1. ALDURAZYME [Suspect]
     Indication: MUCOPOLYSACCHARIDOSIS I
     Dosage: 31.9 MG, 1X/W, UNK
     Dates: start: 20011025

REACTIONS (4)
  - CARDIAC VALVE DISEASE [None]
  - CATHETER SEPSIS [None]
  - HYDROCEPHALUS [None]
  - POOR VENOUS ACCESS [None]
